FAERS Safety Report 7493327-0 (Version None)
Quarter: 2011Q2

REPORT INFORMATION
  Report Type: 
  Country: None (occurrence: None)
  Receive Date: 20110520
  Receipt Date: 20110516
  Transmission Date: 20111010
  Serious: Yes (Other)
  Sender: FDA-Public Use
  Company Number: US-PFIZER INC-2011041616

PATIENT
  Sex: Female

DRUGS (27)
  1. NEURONTIN [Concomitant]
     Indication: NECK PAIN
  2. TIZANIDINE [Concomitant]
     Indication: MUSCLE SPASMS
     Dosage: UNK
     Dates: start: 20070101, end: 20090101
  3. TRIAMCINOLONE [Concomitant]
     Indication: HYPERSENSITIVITY
     Dosage: UNK
     Dates: start: 20050101, end: 20090101
  4. NEURONTIN [Concomitant]
     Indication: FIBROMYALGIA
     Dosage: UNK
     Dates: start: 20040101, end: 20090101
  5. CHANTIX [Suspect]
     Indication: SMOKING CESSATION THERAPY
     Dosage: SAMPLES, UNK
     Dates: start: 20080201, end: 20080601
  6. APAP TAB [Concomitant]
     Indication: HEADACHE
     Dosage: UNK
     Dates: start: 20050101, end: 20090101
  7. AZITHROMYCIN [Concomitant]
     Indication: ANTIBIOTIC THERAPY
     Dosage: UNK
     Dates: start: 20060101, end: 20090101
  8. ACETAMINOPHEN AND HYDROCODONE BITARTRATE [Concomitant]
     Indication: BACK PAIN
     Dosage: UNK
     Dates: start: 20040101, end: 20090101
  9. NEURONTIN [Concomitant]
     Indication: BACK PAIN
  10. MONTELUKAST [Concomitant]
     Indication: ASTHMA
     Dosage: UNK
     Dates: start: 20050101, end: 20090101
  11. TRAMADOL [Concomitant]
     Indication: NECK PAIN
  12. PREDNISONE [Concomitant]
     Indication: ANTIINFLAMMATORY THERAPY
     Dosage: UNK
     Dates: start: 20050101, end: 20090101
  13. CARISOPRODOL [Concomitant]
     Indication: MUSCLE RELAXANT THERAPY
     Dosage: UNK
     Dates: start: 20060101, end: 20090101
  14. ESTRADIOL [Concomitant]
     Indication: OESTROGEN REPLACEMENT THERAPY
     Dosage: UNK
     Dates: start: 20060101, end: 20090101
  15. CHANTIX [Suspect]
     Dosage: SAMPLES, UNK
     Dates: start: 20090301, end: 20090401
  16. PROMETHAZINE [Concomitant]
     Indication: HYPERSENSITIVITY
     Dosage: UNK
     Dates: start: 20040101, end: 20090101
  17. PHENOBARBITAL [Concomitant]
     Indication: IRRITABLE BOWEL SYNDROME
     Dosage: UNK
     Dates: start: 20050101
  18. NEXIUM [Concomitant]
     Indication: GASTROOESOPHAGEAL REFLUX DISEASE
     Dosage: UNK
     Dates: start: 20050101, end: 20090101
  19. CHANTIX [Suspect]
     Dosage: CONTINUING MONTH PACK, UNK
     Dates: start: 20090501, end: 20090601
  20. FLUCONAZOLE [Concomitant]
     Indication: ANTIFUNGAL TREATMENT
     Dosage: UNK
     Dates: start: 20040101, end: 20090101
  21. LYRICA [Concomitant]
     Indication: FIBROMYALGIA
     Dosage: UNK
     Dates: start: 20070101, end: 20090101
  22. DOXYCYCLINE HYCLATE [Concomitant]
     Indication: ANTIBIOTIC THERAPY
     Dosage: UNK
     Dates: start: 20050101, end: 20090101
  23. PROPOXYPHENE HYDROCHLORIDE [Concomitant]
     Indication: JOINT SPRAIN
     Dosage: UNK
     Dates: start: 20050101, end: 20090101
  24. ACETAMINOPHEN AND HYDROCODONE BITARTRATE [Concomitant]
     Indication: NECK PAIN
  25. TRAMADOL [Concomitant]
     Indication: BACK PAIN
     Dosage: UNK
     Dates: start: 20050101, end: 20090101
  26. ALBUTEROL [Concomitant]
     Indication: ASTHMA
     Dosage: UNK
     Dates: start: 20050101, end: 20090101
  27. FLOVENT [Concomitant]
     Indication: ASTHMA
     Dosage: UNK
     Dates: start: 20060101, end: 20090101

REACTIONS (6)
  - INTENTIONAL OVERDOSE [None]
  - DEPRESSION [None]
  - ANXIETY [None]
  - SUICIDE ATTEMPT [None]
  - LOSS OF CONSCIOUSNESS [None]
  - MULTIPLE INJURIES [None]
